FAERS Safety Report 4960918-8 (Version None)
Quarter: 2006Q1

REPORT INFORMATION
  Report Type: 
  Country: None (occurrence: None)
  Receive Date: 20060328
  Receipt Date: 20060314
  Transmission Date: 20060701
  Serious: Yes (Other)
  Sender: FDA-Public Use
  Company Number: 2006035576

PATIENT
  Age: 38 Year
  Sex: Male

DRUGS (9)
  1. ATENOLOL [Suspect]
     Indication: HYPERTENSION
     Dosage: 50 MG, ORAL
     Route: 048
     Dates: start: 20051008, end: 20060306
  2. CARDENALIN (DOXAZOSIN) [Suspect]
     Indication: HYPERTENSION
     Dosage: 8 MG, ORAL
     Route: 048
     Dates: start: 20050701, end: 20060306
  3. ADALAT [Suspect]
     Indication: HYPERTENSION
     Dosage: 80 MG, ORAL
     Route: 048
     Dates: start: 20050701, end: 20060306
  4. MICARDIS [Suspect]
     Indication: HYPERTENSION
     Dosage: 160 MG, ORAL
     Route: 048
     Dates: start: 20050701, end: 20060306
  5. ACECOL (TEMOCAPRIL HYDROCHLORIDE) [Suspect]
     Indication: ILL-DEFINED DISORDER
     Dosage: 8 MG, ORAL
     Route: 048
     Dates: start: 20050701, end: 20060306
  6. CALCIUM (CARBONATE CALCIUM) [Concomitant]
  7. SEVELAMER HYDROCHLORIDE (SEVELAMER HYDROCHLORIDE) [Concomitant]
  8. PURSENNID (SENNA LEAF) [Concomitant]
  9. ALOSENN (ACHILLEA, RUBIA ROOT TINCTURE, SENNA FRUIT, SENNA LEAF, TARAX [Concomitant]

REACTIONS (5)
  - ATRIOVENTRICULAR BLOCK FIRST DEGREE [None]
  - DRUG LEVEL INCREASED [None]
  - ELECTROCARDIOGRAM PQ INTERVAL PROLONGED [None]
  - ELECTROCARDIOGRAM QT PROLONGED [None]
  - FEELING ABNORMAL [None]
